FAERS Safety Report 9731944 (Version 2)
Quarter: 2013Q4

REPORT INFORMATION
  Report Type: Spontaneous
  Country: BG (occurrence: BG)
  Receive Date: 20131205
  Receipt Date: 20131210
  Transmission Date: 20140711
  Serious: Yes (Death)
  Sender: FDA-Public Use
  Company Number: PHHY2013BG141533

PATIENT
  Age: 52 Year
  Sex: Female
  Weight: 62 kg

DRUGS (1)
  1. TASIGNA [Suspect]
     Indication: CHRONIC MYELOID LEUKAEMIA
     Dosage: 300 MG, BID
     Route: 048
     Dates: start: 20130512, end: 20130710

REACTIONS (10)
  - Traumatic intracranial haemorrhage [Fatal]
  - Pancytopenia [Fatal]
  - Thrombocytopenia [Fatal]
  - Leukopenia [Fatal]
  - Neutropenia [Fatal]
  - Anaemia [Fatal]
  - Petechiae [Fatal]
  - Pyrexia [Fatal]
  - Chronic myeloid leukaemia transformation [Fatal]
  - Leukocytosis [Fatal]
